FAERS Safety Report 11314775 (Version 1)
Quarter: 2015Q3

REPORT INFORMATION
  Report Type: Spontaneous
  Country: US (occurrence: US)
  Receive Date: 20150727
  Receipt Date: 20150727
  Transmission Date: 20151125
  Serious: No
  Sender: FDA-Public Use
  Company Number: US-GLAXOSMITHKLINE-US2015GSK089089

PATIENT
  Sex: Female

DRUGS (2)
  1. SUMATRIPTAN NASAL SPRAY [Suspect]
     Active Substance: SUMATRIPTAN
     Dosage: 2 DF, PRN
  2. SUMATRIPTAN NASAL SPRAY [Suspect]
     Active Substance: SUMATRIPTAN
     Indication: MIGRAINE
     Dosage: 1 DF, PRN

REACTIONS (2)
  - Intentional overdose [Unknown]
  - Migraine [Unknown]
